FAERS Safety Report 4431397-4 (Version None)
Quarter: 2004Q3

REPORT INFORMATION
  Report Type: 
  Country: None (occurrence: None)
  Receive Date: 20040820
  Receipt Date: 20040820
  Transmission Date: 20050211
  Serious: Yes (Hospitalization, Other)
  Sender: FDA-Public Use
  Company Number: None

PATIENT
  Age: 84 Year
  Sex: Female
  Weight: 77 kg

DRUGS (10)
  1. SOLU-MEDROL [Suspect]
     Dosage: 125 THEN 62.5 THEN 40 MG IV Q 8 H
     Route: 042
     Dates: start: 20040415, end: 20040421
  2. PREDNISONE [Suspect]
     Dosage: 40 MG QD
     Dates: start: 20040415, end: 20040421
  3. ALBUTEROL [Concomitant]
  4. AMLODIPINE [Concomitant]
  5. ESCITALOPRAM OXALATE [Concomitant]
  6. FUROSEMIDE [Concomitant]
  7. IPRATROPIUM BROMIDE [Concomitant]
  8. LISINOPRIL [Concomitant]
  9. METOPROLOL [Concomitant]
  10. LAMOP(SEE IMAGE) [Concomitant]

REACTIONS (1)
  - MEDICATION ERROR [None]
